FAERS Safety Report 15504175 (Version 1)
Quarter: 2018Q4

REPORT INFORMATION
  Report Type: Report from Study
  Country: US (occurrence: US)
  Receive Date: 20181016
  Receipt Date: 20181016
  Transmission Date: 20190205
  Serious: No
  Sender: FDA-Public Use
  Company Number: US-AMGEN INC.-USASL2018130174

PATIENT
  Age: 27 Year
  Sex: Female

DRUGS (2)
  1. RITALIN LA [Suspect]
     Active Substance: METHYLPHENIDATE HYDROCHLORIDE
     Indication: ATTENTION DEFICIT/HYPERACTIVITY DISORDER
     Dosage: 60 MG, QD (EVERY MORNING)
     Route: 065
  2. AIMOVIG [Suspect]
     Active Substance: ERENUMAB-AOOE
     Indication: MIGRAINE PROPHYLAXIS
     Dosage: 140 MG, QMO
     Route: 065
     Dates: start: 20180917

REACTIONS (12)
  - Heart rate increased [Unknown]
  - Feeling jittery [Unknown]
  - Fatigue [Unknown]
  - Discomfort [Unknown]
  - Speech disorder [Unknown]
  - Tension [Unknown]
  - Muscle tightness [Unknown]
  - Tachyphrenia [Unknown]
  - Anxiety [Unknown]
  - Stress [Unknown]
  - Psychomotor hyperactivity [Unknown]
  - Chest pain [Unknown]

NARRATIVE: CASE EVENT DATE: 20180917
